FAERS Safety Report 15738399 (Version 1)
Quarter: 2018Q4

REPORT INFORMATION
  Report Type: Report from Study
  Country: None (occurrence: IE)
  Receive Date: 20181219
  Receipt Date: 20181219
  Transmission Date: 20190205
  Serious: Yes (Other)
  Sender: FDA-Public Use
  Company Number: IE-ABBVIE-18K-229-2589743-00

PATIENT
  Sex: Female
  Weight: 1.36 kg

DRUGS (1)
  1. HUMIRA [Suspect]
     Active Substance: ADALIMUMAB
     Indication: MATERNAL EXPOSURE TIMING UNSPECIFIED
     Route: 064

REACTIONS (6)
  - Mechanical ventilation [Unknown]
  - Foetal exposure during pregnancy [Unknown]
  - Foetal distress syndrome [Unknown]
  - Foetal hypokinesia [Recovered/Resolved]
  - Platelet count decreased [Unknown]
  - Neonatal infection [Unknown]
